FAERS Safety Report 5842885-8 (Version None)
Quarter: 2008Q3

REPORT INFORMATION
  Report Type: 
  Country: None (occurrence: None)
  Receive Date: 20080731
  Receipt Date: 20080328
  Transmission Date: 20090109
  Serious: No
  Sender: FDA-Public Use
  Company Number: US200801004947

PATIENT
  Age: 50 Year
  Sex: Female

DRUGS (6)
  1. BYETTA [Suspect]
     Indication: TYPE 2 DIABETES MELLITUS
     Dosage: 5 UG, 2/D, SUBCUTANEOUS ; 15 UG, OTHER, SUBCUTANEOUS
     Route: 058
     Dates: start: 20080328, end: 20080328
  2. BYETTA [Suspect]
     Indication: TYPE 2 DIABETES MELLITUS
     Dosage: 5 UG, 2/D, SUBCUTANEOUS ; 15 UG, OTHER, SUBCUTANEOUS
     Route: 058
     Dates: start: 20080122
  3. BYETTA [Suspect]
  4. GLYBURIDE AND METFORMIN HCL [Concomitant]
  5. METFORMIN HCL [Concomitant]
  6. TEMAZEPAM [Concomitant]

REACTIONS (8)
  - BLOOD GLUCOSE INCREASED [None]
  - DECREASED APPETITE [None]
  - FEELING JITTERY [None]
  - INCORRECT DOSE ADMINISTERED [None]
  - INJECTION SITE EXTRAVASATION [None]
  - INJECTION SITE HAEMORRHAGE [None]
  - INSOMNIA [None]
  - NAUSEA [None]
